FAERS Safety Report 5281781-4 (Version None)
Quarter: 2007Q1

REPORT INFORMATION
  Report Type: 
  Country: None (occurrence: None)
  Receive Date: 20070330
  Receipt Date: 20070323
  Transmission Date: 20070707
  Serious: Yes (Other)
  Sender: FDA-Public Use
  Company Number: NL-GLAXOSMITHKLINE-B0464364A

PATIENT
  Age: 60 Year
  Sex: Male

DRUGS (1)
  1. MALARONE [Suspect]
     Indication: DRUG USE FOR UNKNOWN INDICATION
     Route: 048

REACTIONS (2)
  - DEPRESSION [None]
  - SENSORY DISTURBANCE [None]
